FAERS Safety Report 25980572 (Version 1)
Quarter: 2025Q4

REPORT INFORMATION
  Report Type: Spontaneous
  Country: GB (occurrence: GB)
  Receive Date: 20251030
  Receipt Date: 20251030
  Transmission Date: 20260118
  Serious: Yes (Other)
  Sender: DR REDDYS
  Company Number: None

PATIENT
  Age: 44 Year
  Sex: Female
  Weight: 58 kg

DRUGS (7)
  1. FEXOFENADINE HYDROCHLORIDE [Suspect]
     Active Substance: FEXOFENADINE HYDROCHLORIDE
     Indication: Ill-defined disorder
  2. DERMACOOL [Concomitant]
     Indication: Ill-defined disorder
     Dosage: APPLY ONTO SKIN - UPTO TWICE DAILY
     Dates: start: 20250808, end: 20250905
  3. CLOBETASOL PROPIONATE [Concomitant]
     Active Substance: CLOBETASOL PROPIONATE
     Indication: Ill-defined disorder
     Dosage: TO WASH SCALP ONCE DAILY FOR THREE TIMES A WEEK...
  4. FAMOTIDINE [Concomitant]
     Active Substance: FAMOTIDINE
     Indication: Ill-defined disorder
     Dosage: 20 MG TWICE DAILY-PLEASE STOP LANSOPRAZOLE IF Y...
  5. LANSOPRAZOLE [Concomitant]
     Active Substance: LANSOPRAZOLE
     Indication: Ill-defined disorder
     Dosage: TAKE ONE ONCE DAILY
  6. NIZORAL [Concomitant]
     Active Substance: KETOCONAZOLE
     Indication: Ill-defined disorder
     Dosage: TO WASH SCALP TWICE WEEKLY AFTER A PERIOD OF ET...
  7. ZEROBASE [Concomitant]
     Indication: Ill-defined disorder
     Dosage: USE AS DIRECTED

REACTIONS (2)
  - Drug reaction with eosinophilia and systemic symptoms [Unknown]
  - Rash [Recovered/Resolved]
